FAERS Safety Report 23421230 (Version 2)
Quarter: 2024Q1

REPORT INFORMATION
  Report Type: Report from Study
  Country: IE (occurrence: IE)
  Receive Date: 20240119
  Receipt Date: 20240122
  Transmission Date: 20240410
  Serious: Yes (Hospitalization, Other)
  Sender: FDA-Public Use
  Company Number: IE-002147023-NVSC2023IE237387

PATIENT
  Age: 54 Year
  Sex: Female

DRUGS (1)
  1. COSENTYX [Suspect]
     Active Substance: SECUKINUMAB
     Indication: Axial spondyloarthritis
     Dosage: 150 MG, QMO
     Route: 065
     Dates: start: 20230903

REACTIONS (3)
  - Pneumonia [Unknown]
  - Pneumothorax [Unknown]
  - Cough [Unknown]

NARRATIVE: CASE EVENT DATE: 20231031
